FAERS Safety Report 6297473-9 (Version None)
Quarter: 2009Q3

REPORT INFORMATION
  Report Type: 
  Country: None (occurrence: None)
  Receive Date: 20090805
  Receipt Date: 20090731
  Transmission Date: 20100115
  Serious: Yes (Hospitalization)
  Sender: FDA-Public Use
  Company Number: FR-WYE-G04158409

PATIENT
  Sex: Female

DRUGS (16)
  1. TAZOCILLINE [Suspect]
     Route: 042
     Dates: start: 20080912, end: 20081007
  2. GLEEVEC [Suspect]
     Route: 048
     Dates: start: 20081003, end: 20081008
  3. FLAGYL [Suspect]
     Route: 048
     Dates: start: 20080921, end: 20081005
  4. TRIFLUCAN [Suspect]
     Route: 042
     Dates: start: 20081001, end: 20081005
  5. ACUPAN [Suspect]
     Dosage: UNKNOWN
     Route: 042
     Dates: start: 20081002, end: 20081008
  6. TRANXENE [Concomitant]
     Dosage: UNKNOWN
  7. TOPALGIC [Concomitant]
     Dosage: UNKNOWN
  8. CIFLOX [Concomitant]
     Dosage: UNKNOWN
     Route: 042
  9. ONDANSETRON HCL [Concomitant]
     Dosage: UNKNOWN
     Route: 042
  10. MORPHINE [Concomitant]
     Dosage: UNKNOWN
  11. ATARAX [Concomitant]
  12. XANAX [Concomitant]
     Dosage: UNKNOWN
     Route: 048
  13. GRANOCYTE [Concomitant]
     Dosage: UNKNOWN
  14. VOGALENE [Concomitant]
     Dosage: UNKNOWN
  15. KIDROLASE [Suspect]
     Route: 042
     Dates: start: 20080918, end: 20080922
  16. KIDROLASE [Suspect]
     Route: 042
     Dates: start: 20080930, end: 20081002

REACTIONS (4)
  - CHOLESTASIS [None]
  - HEPATIC STEATOSIS [None]
  - HEPATOMEGALY [None]
  - PANCREATITIS ACUTE [None]
